FAERS Safety Report 8175795-4 (Version None)
Quarter: 2012Q1

REPORT INFORMATION
  Report Type: 
  Country: None (occurrence: None)
  Receive Date: 20120228
  Receipt Date: 20120214
  Transmission Date: 20120608
  Serious: Yes (Hospitalization, Other)
  Sender: FDA-Public Use
  Company Number: 2012P1003428

PATIENT
  Sex: Female
  Weight: 64.4108 kg

DRUGS (16)
  1. FENTANYL [Suspect]
     Dosage: 2 PATCHES;Q72H;TDER
  2. LEXAPRO [Concomitant]
  3. OMEPRAZOLE [Concomitant]
  4. ZONEGRAN [Concomitant]
  5. DOCUSATE [Concomitant]
  6. ASCORBIC ACID [Concomitant]
  7. PERCOCET [Concomitant]
  8. ZOFRAN [Concomitant]
  9. VITAMIN B6 [Concomitant]
  10. COMPLETE VITAMIN [Concomitant]
  11. COMPLETE VITAMIN [Concomitant]
  12. AMITRIPTYLINE HCL [Concomitant]
  13. FENTANYL [Suspect]
     Dosage: 200 UG;
  14. XANAX [Concomitant]
  15. FENTANYL-75 [Suspect]
     Indication: BACK PAIN
     Dosage: 2 PATCHES;Q72H;TDER
  16. OSCAL PLUS D [Concomitant]

REACTIONS (4)
  - PRODUCT ADHESION ISSUE [None]
  - HYPERHIDROSIS [None]
  - HAEMORRHAGE INTRACRANIAL [None]
  - CEREBROVASCULAR ACCIDENT [None]
